FAERS Safety Report 4468047-7 (Version None)
Quarter: 2004Q4

REPORT INFORMATION
  Report Type: 
  Country: None (occurrence: None)
  Receive Date: 20041004
  Receipt Date: 20040920
  Transmission Date: 20050328
  Serious: Yes (Hospitalization, Disabling, Other)
  Sender: FDA-Public Use
  Company Number: 2004063423

PATIENT
  Age: 66 Year
  Sex: Male

DRUGS (2)
  1. VIAGRA [Suspect]
     Indication: ERECTILE DYSFUNCTION
     Dosage: (50 MG), ORAL
     Route: 048
     Dates: start: 20020924, end: 20040727
  2. AMLODIINE (AMLODIPINE) [Concomitant]

REACTIONS (4)
  - CEREBROVASCULAR ACCIDENT [None]
  - COGNITIVE DISORDER [None]
  - DYSAESTHESIA [None]
  - VISUAL FIELD DEFECT [None]
